FAERS Safety Report 21020368 (Version 11)
Quarter: 2023Q1

REPORT INFORMATION
  Report Type: Report from Study
  Country: CA (occurrence: CA)
  Receive Date: 20220629
  Receipt Date: 20230324
  Transmission Date: 20230418
  Serious: Yes (Hospitalization, Other)
  Sender: FDA-Public Use
  Company Number: CA-JNJFOC-20220528185

PATIENT
  Age: 60 Year
  Sex: Female

DRUGS (2)
  1. REMICADE [Suspect]
     Active Substance: INFLIXIMAB
     Indication: Crohn^s disease
     Route: 041
     Dates: start: 20080311
  2. REMICADE [Suspect]
     Active Substance: INFLIXIMAB
     Route: 040
     Dates: end: 20220712

REACTIONS (17)
  - Post procedural infection [Recovering/Resolving]
  - Hysterectomy [Unknown]
  - Computerised tomogram pelvis abnormal [Unknown]
  - Eructation [Unknown]
  - Hypophagia [Unknown]
  - White blood cell disorder [Unknown]
  - Mucous stools [Not Recovered/Not Resolved]
  - Pelvic pain [Not Recovered/Not Resolved]
  - Decreased appetite [Unknown]
  - Gastrointestinal inflammation [Unknown]
  - Dyspepsia [Unknown]
  - Fatigue [Unknown]
  - Arthralgia [Not Recovered/Not Resolved]
  - Abdominal pain [Not Recovered/Not Resolved]
  - Therapeutic product effect decreased [Unknown]
  - Nausea [Unknown]
  - Off label use [Unknown]

NARRATIVE: CASE EVENT DATE: 20220101
